FAERS Safety Report 9752442 (Version 2)
Quarter: 2013Q4

REPORT INFORMATION
  Report Type: Report from Study
  Country: US (occurrence: US)
  Receive Date: 20131213
  Receipt Date: 20131230
  Transmission Date: 20140711
  Serious: Yes (Death)
  Sender: FDA-Public Use
  Company Number: US-ROCHE-1319391

PATIENT
  Sex: Male
  Weight: 100.33 kg

DRUGS (8)
  1. XELODA [Suspect]
     Indication: RECTAL CANCER
     Dosage: 14 DAYS ON/ 7 DAYS OFF
     Route: 048
  2. XELODA [Suspect]
     Dosage: 14 DAYS ON/ 7 DAYS OFF
     Route: 048
  3. AMOXIL [Concomitant]
     Route: 048
  4. ZOFRAN [Concomitant]
     Indication: NAUSEA
     Route: 048
  5. ZOFRAN [Concomitant]
     Indication: VOMITING
  6. COMPAZINE [Concomitant]
     Indication: NAUSEA
     Route: 048
  7. COMPAZINE [Concomitant]
     Indication: VOMITING
  8. SODIUM BICARBONATE [Concomitant]
     Route: 048

REACTIONS (2)
  - Disease progression [Fatal]
  - Renal failure [Fatal]
